FAERS Safety Report 7434026-0 (Version None)
Quarter: 2011Q2

REPORT INFORMATION
  Report Type: 
  Country: None (occurrence: None)
  Receive Date: 20110425
  Receipt Date: 20110419
  Transmission Date: 20111010
  Serious: No
  Sender: FDA-Public Use
  Company Number: US-B.I. PHARMACEUTICALS,INC./RIDGEFIELD-2011-BP-03770BP

PATIENT
  Sex: Female

DRUGS (8)
  1. VITAMIN B-12 [Concomitant]
  2. CAL/MAG [Concomitant]
  3. CARDIZEM [Concomitant]
     Dosage: 120 MG
  4. RANITIDINE [Concomitant]
     Dosage: 300 MG
  5. PRADAXA [Suspect]
     Indication: ATRIAL FIBRILLATION
     Dosage: 300 MG
     Route: 048
     Dates: start: 20110129, end: 20110130
  6. LABETALOL [Concomitant]
     Dosage: 400 MG
  7. D-3 [Concomitant]
  8. ASPIRIN [Concomitant]

REACTIONS (3)
  - PALPITATIONS [None]
  - EPISTAXIS [None]
  - BLOOD URINE PRESENT [None]
